FAERS Safety Report 7694098-5 (Version None)
Quarter: 2011Q3

REPORT INFORMATION
  Report Type: 
  Country: None (occurrence: None)
  Receive Date: 20110819
  Receipt Date: 20110810
  Transmission Date: 20111222
  Serious: Yes (Other)
  Sender: FDA-Public Use
  Company Number: GR-JNJFOC-20110807498

PATIENT
  Age: 67 Year
  Sex: Female

DRUGS (1)
  1. SIMPONI [Suspect]
     Indication: ILL-DEFINED DISORDER
     Route: 058

REACTIONS (1)
  - BLOOD AMYLASE INCREASED [None]
